FAERS Safety Report 14879556 (Version 1)
Quarter: 2018Q2

REPORT INFORMATION
  Report Type: Report from Study
  Country: AT (occurrence: AT)
  Receive Date: 20180511
  Receipt Date: 20180511
  Transmission Date: 20180711
  Serious: Yes (Other)
  Sender: FDA-Public Use
  Company Number: AT-ACCORD-066803

PATIENT
  Age: 77 Year
  Sex: Male
  Weight: 83 kg

DRUGS (11)
  1. ABRAXANE [Suspect]
     Active Substance: PACLITAXEL
     Indication: PRODUCT USED FOR UNKNOWN INDICATION
     Dosage: 200 MG/M2 FROM 08-JUL-2017 AND 200 MG/M2 FROM AUG-2017
     Route: 041
     Dates: start: 201707
  2. SOLAREX [Concomitant]
     Dosage: 160 MILLIGRAM
  3. ALLOPURINOL. [Concomitant]
     Active Substance: ALLOPURINOL
     Dosage: 300 MILLIGRAM
  4. CREON [Concomitant]
     Active Substance: PANCRELIPASE AMYLASE\PANCRELIPASE LIPASE\PANCRELIPASE PROTEASE
     Dosage: 120 IU (INTERNATIONAL UNIT)
  5. AMLODIPINE [Concomitant]
     Active Substance: AMLODIPINE BESYLATE
     Dosage: 10 MILLIGRAM
  6. NEUROBION FORTE [Concomitant]
     Active Substance: CYANOCOBALAMIN\PYRIDOXINE HYDROCHLORIDE\THIAMINE DISULFIDE
     Dosage: DOSE 1 UNK UNIT
  7. GEMCITABINE/GEMCITABINE HYDROCHLORIDE [Suspect]
     Active Substance: GEMCITABINE\GEMCITABINE HYDROCHLORIDE
     Indication: PANCREATIC CARCINOMA
     Dosage: 1600 AND 1622 FROM JUL-2017,1582 FROM SEP-2017, 1605 FROM 09-AUG-2017 AND FROM JUL-2016 TO JAN-2017
     Dates: start: 201607
  8. APIDRA [Concomitant]
     Active Substance: INSULIN GLULISINE
     Dosage: 4 IE- 3IE-3IE
  9. PANTOLOC [Concomitant]
     Active Substance: PANTOPRAZOLE SODIUM
     Dosage: 40 MILLIGRAM
  10. LEM PLUS [Concomitant]
     Dosage: 8 IE
  11. LASIX [Concomitant]
     Active Substance: FUROSEMIDE

REACTIONS (4)
  - Disease progression [None]
  - Liver function test increased [Recovered/Resolved]
  - Leukopenia [Recovered/Resolved]
  - Pancreatic carcinoma [Unknown]

NARRATIVE: CASE EVENT DATE: 20170825
